FAERS Safety Report 15553639 (Version 1)
Quarter: 2018Q4

REPORT INFORMATION
  Report Type: Spontaneous
  Country: FR (occurrence: FR)
  Receive Date: 20181026
  Receipt Date: 20181026
  Transmission Date: 20190205
  Serious: Yes (Hospitalization, Congenital Anomaly)
  Sender: FDA-Public Use
  Company Number: FR-TEVA-2018-FR-968696

PATIENT
  Age: 0 Day
  Sex: Female

DRUGS (10)
  1. SOLU-MEDROL [Suspect]
     Active Substance: METHYLPREDNISOLONE SODIUM SUCCINATE
     Indication: RELAPSING MULTIPLE SCLEROSIS
     Dosage: 500 MILLIGRAM DAILY;
     Route: 064
     Dates: start: 20170731, end: 20170731
  2. TYSABRI [Suspect]
     Active Substance: NATALIZUMAB
     Route: 064
     Dates: start: 20170902, end: 20170902
  3. SOLU-MEDROL [Suspect]
     Active Substance: METHYLPREDNISOLONE SODIUM SUCCINATE
     Indication: RELAPSING MULTIPLE SCLEROSIS
     Route: 064
     Dates: start: 20170721, end: 20170723
  4. CELESTENE [BETAMETHASONE] [Suspect]
     Active Substance: BETAMETHASONE
     Indication: THREATENED LABOUR
     Route: 064
     Dates: start: 20170725, end: 20170726
  5. ADALATE 20 MG L.P., COMPRIM? ? LIB?RATION PROLONG?E [Suspect]
     Active Substance: NIFEDIPINE
     Indication: THREATENED LABOUR
     Dosage: 80 MILLIGRAM DAILY;
     Route: 064
     Dates: start: 20170727, end: 20170728
  6. TRACTOCILE [Suspect]
     Active Substance: ATOSIBAN
     Indication: THREATENED LABOUR
     Dosage: UNKNOWN
     Route: 064
     Dates: start: 20170725, end: 20170726
  7. TYSABRI [Suspect]
     Active Substance: NATALIZUMAB
     Indication: RELAPSING-REMITTING MULTIPLE SCLEROSIS
     Route: 064
     Dates: start: 20170120, end: 20170120
  8. TYSABRI [Suspect]
     Active Substance: NATALIZUMAB
     Route: 064
     Dates: start: 20170802, end: 20170802
  9. AMOXICILLINE SODIQUE [Suspect]
     Active Substance: AMOXICILLIN
     Indication: ANTIBIOTIC PROPHYLAXIS
     Dosage: 3 GRAM DAILY;
     Route: 065
     Dates: start: 20170727, end: 20170802
  10. SOLU-MEDROL [Suspect]
     Active Substance: METHYLPREDNISOLONE SODIUM SUCCINATE
     Indication: RELAPSING MULTIPLE SCLEROSIS
     Dosage: 1 GRAM DAILY;
     Route: 064
     Dates: start: 20170801, end: 20170802

REACTIONS (2)
  - Low birth weight baby [Recovering/Resolving]
  - Inguinal hernia [Recovered/Resolved]

NARRATIVE: CASE EVENT DATE: 20170930
